FAERS Safety Report 14624297 (Version 1)
Quarter: 2018Q1

REPORT INFORMATION
  Report Type: Spontaneous
  Country: US (occurrence: US)
  Receive Date: 20180309
  Receipt Date: 20180309
  Transmission Date: 20180509
  Serious: Yes (Life-Threatening, Hospitalization)
  Sender: FDA-Public Use
  Company Number: None

PATIENT
  Age: 74 Year
  Sex: Male
  Weight: 92.8 kg

DRUGS (1)
  1. KEYTRUDA [Suspect]
     Active Substance: PEMBROLIZUMAB
     Indication: URETERIC CANCER
     Dosage: OTHER FREQUENCY:EVERY 3 WEEKS;?
     Route: 040
     Dates: start: 20170925, end: 20171218

REACTIONS (3)
  - Cardiac tamponade [None]
  - Pericardial effusion [None]
  - Dyspnoea [None]

NARRATIVE: CASE EVENT DATE: 20180105
